FAERS Safety Report 9717432 (Version 1)
Quarter: 2013Q4

REPORT INFORMATION
  Report Type: Spontaneous
  Country: US (occurrence: US)
  Receive Date: 20131127
  Receipt Date: 20131127
  Transmission Date: 20140711
  Serious: No
  Sender: FDA-Public Use
  Company Number: US-GILEAD-2008-0019659

PATIENT
  Sex: Female
  Weight: 103.42 kg

DRUGS (10)
  1. LETAIRIS [Suspect]
     Indication: PULMONARY ARTERIAL HYPERTENSION
     Route: 048
     Dates: start: 20081111
  2. ZANTAC [Concomitant]
     Route: 048
  3. LASIX [Concomitant]
     Route: 048
  4. HYDROCHLOROTHIAZIDE [Concomitant]
     Route: 048
  5. ZOCOR [Concomitant]
     Route: 048
  6. ZETIA [Concomitant]
     Route: 048
  7. POTASSIUM CHLORIDE [Concomitant]
     Route: 048
  8. CALCIUM WITH VIT D [Concomitant]
     Route: 048
  9. KLONOPIN [Concomitant]
     Route: 048
  10. MUTIVITAMIN [Concomitant]
     Route: 048

REACTIONS (2)
  - Abdominal discomfort [None]
  - Dyspnoea [None]
